FAERS Safety Report 5900228-5 (Version None)
Quarter: 2008Q3

REPORT INFORMATION
  Report Type: 
  Country: None (occurrence: None)
  Receive Date: 20080926
  Receipt Date: 20080917
  Transmission Date: 20090109
  Serious: Yes (Hospitalization, Other)
  Sender: FDA-Public Use
  Company Number: US-JNJFOC-20080706922

PATIENT
  Sex: Male
  Weight: 75.3 kg

DRUGS (5)
  1. ULTRAM ER [Suspect]
     Indication: BACK PAIN
     Dosage: 50MG TID
     Route: 048
  2. ULTRAM [Suspect]
     Indication: BACK PAIN
     Route: 048
  3. CYMBALTA [Interacting]
     Indication: PAIN
     Route: 065
  4. CYMBALTA [Interacting]
     Indication: SPINAL COLUMN STENOSIS
     Route: 065
  5. GRAPEFRUIT JUICE [Interacting]
     Indication: DRUG USE FOR UNKNOWN INDICATION
     Route: 048

REACTIONS (2)
  - DRUG INTERACTION [None]
  - SEROTONIN SYNDROME [None]
